FAERS Safety Report 7108661-3 (Version None)
Quarter: 2010Q4

REPORT INFORMATION
  Report Type: 
  Country: None (occurrence: None)
  Receive Date: 20101117
  Receipt Date: 20101112
  Transmission Date: 20110411
  Serious: Yes (Death, Hospitalization)
  Sender: FDA-Public Use
  Company Number: PT-ROCHE-729338

PATIENT
  Sex: Male
  Weight: 47 kg

DRUGS (2)
  1. XELODA [Suspect]
     Indication: RECTAL CANCER
     Route: 048
     Dates: start: 20090101, end: 20090626
  2. XELODA [Suspect]
     Route: 048
     Dates: start: 20090930, end: 20100112

REACTIONS (2)
  - PALMAR-PLANTAR ERYTHRODYSAESTHESIA SYNDROME [None]
  - SEPSIS [None]
